FAERS Safety Report 8096585 (Version 4)
Quarter: 2012Q4

REPORT INFORMATION
  Report Type: 
  Country: FR (occurrence: FR)
  Receive Date: 20110818
  Receipt Date: 20121119
  Transmission Date: 20130627
  Serious: Yes (Other)
  Sender: FDA-Public Use
  Company Number: FR-JNJFOC-20110807270

PATIENT
  Age: 8 Year
  Sex: Female

DRUGS (5)
  1. ZYRTEC [Suspect]
     Route: 048
  2. ZYRTEC [Suspect]
     Indication: PRODUCT USED FOR UNKNOWN INDICATION
     Route: 048
  3. ZYRTEC [Suspect]
     Route: 048
  4. ZYRTEC [Suspect]
     Indication: HYPERSENSITIVITY
     Dosage: 20 drops (=10mg) daily
     Route: 048
     Dates: start: 201106, end: 20110802
  5. COLLYRIUM [Concomitant]
     Indication: CONJUNCTIVITIS
     Route: 047
     Dates: start: 2010

REACTIONS (2)
  - Oculogyric crisis [Not Recovered/Not Resolved]
  - Tic [Not Recovered/Not Resolved]
